FAERS Safety Report 8716341 (Version 2)
Quarter: 2013Q4

REPORT INFORMATION
  Report Type: Spontaneous
  Country: ZA (occurrence: ZA)
  Receive Date: 20120810
  Receipt Date: 20131031
  Transmission Date: 20140711
  Serious: Yes (Hospitalization)
  Sender: FDA-Public Use
  Company Number: ZA-009507513-1208ZAF002833

PATIENT
  Age: 36 Year
  Sex: Female

DRUGS (4)
  1. INEGY [Suspect]
     Indication: BLOOD CHOLESTEROL
     Dosage: 1 DF, QD
     Route: 048
  2. SERDEP [Concomitant]
     Dosage: 1 UNK,BD
  3. PUR-BLOKA [Concomitant]
     Dosage: 1 DF, BID
  4. MOLIPAXIN [Concomitant]
     Dosage: 100 MG, AT NIGHT

REACTIONS (1)
  - Convulsion [Recovered/Resolved]
